FAERS Safety Report 8153148-2 (Version None)
Quarter: 2012Q1

REPORT INFORMATION
  Report Type: 
  Country: None (occurrence: None)
  Receive Date: 20120221
  Receipt Date: 20120215
  Transmission Date: 20120608
  Serious: Yes (Other)
  Sender: FDA-Public Use
  Company Number: US-BAYER-2012-016762

PATIENT

DRUGS (5)
  1. DITROPAN [Concomitant]
     Dosage: 10 MG, UNK
  2. HYDROCHLOROTHIAZIDE [Concomitant]
     Dosage: 25 MG, UNK
  3. SINGULAIR [Concomitant]
     Dosage: 10 MG, UNK
  4. YASMIN [Suspect]
     Indication: CONTRACEPTION
  5. LISINOPRIL [Concomitant]
     Dosage: 10 MG, UNK

REACTIONS (16)
  - CHOLECYSTITIS CHRONIC [None]
  - VOMITING [None]
  - CHEST PAIN [None]
  - ANHEDONIA [None]
  - PULMONARY EMBOLISM [None]
  - DIARRHOEA [None]
  - TEARFULNESS [None]
  - NAUSEA [None]
  - DISTURBANCE IN ATTENTION [None]
  - SLEEP DISORDER [None]
  - GALLBLADDER ENLARGEMENT [None]
  - DYSPNOEA [None]
  - UNEVALUABLE EVENT [None]
  - ABDOMINAL PAIN UPPER [None]
  - HYPERTENSION [None]
  - DEEP VEIN THROMBOSIS POSTOPERATIVE [None]
